FAERS Safety Report 9209305 (Version 1)
Quarter: 2013Q1

REPORT INFORMATION
  Report Type: Spontaneous
  Country: US (occurrence: None)
  Receive Date: 20120723
  Receipt Date: 20120723
  Transmission Date: 20140127
  Serious: Yes (Other)
  Sender: FDA-Public Use
  Company Number: CTI_01429_2011

PATIENT
  Sex: Female

DRUGS (1)
  1. ZYFLO CR [Suspect]
     Indication: CHRONIC SINUSITIS
     Dates: start: 201108

REACTIONS (3)
  - Alanine aminotransferase increased [None]
  - Gamma-glutamyltransferase increased [None]
  - Aspartate aminotransferase increased [None]
